FAERS Safety Report 5538281-3 (Version None)
Quarter: 2007Q4

REPORT INFORMATION
  Report Type: 
  Country: None (occurrence: None)
  Receive Date: 20071123
  Receipt Date: 20070607
  Transmission Date: 20080405
  Serious: Yes (Other)
  Sender: FDA-Public Use
  Company Number: US-JNJFOC-20070602816

PATIENT
  Age: 70 Year
  Sex: Female
  Weight: 73.4827 kg

DRUGS (4)
  1. LEVAQUIN [Suspect]
     Indication: BRONCHITIS
     Dosage: 500 MG, 1 IN 1 DAY, ORAL
     Route: 048
     Dates: start: 20040302, end: 20040308
  2. LEVAQUIN [Suspect]
     Indication: SINUSITIS
     Dosage: 500 MG, 1 IN 1 DAY, ORAL
     Route: 048
     Dates: start: 20040302, end: 20040308
  3. ALLEGRA [Concomitant]
  4. ADVAIR DISKUS 100/50 [Concomitant]

REACTIONS (4)
  - ARTHRITIS [None]
  - PLANTAR FASCIITIS [None]
  - ROTATOR CUFF SYNDROME [None]
  - TENDONITIS [None]
